FAERS Safety Report 5182399-4 (Version None)
Quarter: 2006Q4

REPORT INFORMATION
  Report Type: 
  Country: None (occurrence: None)
  Receive Date: 20061220
  Receipt Date: 20060825
  Transmission Date: 20070319
  Serious: No
  Sender: FDA-Public Use
  Company Number: US-GLAXOSMITHKLINE-A0618187A

PATIENT
  Age: 59 Year
  Sex: Female

DRUGS (6)
  1. COMMIT [Suspect]
     Dates: start: 20060824, end: 20060824
  2. GLUCOPHAGE [Concomitant]
  3. BLOOD PRESSURE MEDICATION [Concomitant]
  4. ATACAND [Concomitant]
  5. LIPITOR [Concomitant]
  6. SYNTHROID [Concomitant]

REACTIONS (2)
  - DIARRHOEA [None]
  - STOMACH DISCOMFORT [None]
